FAERS Safety Report 4525715-6 (Version None)
Quarter: 2004Q4

REPORT INFORMATION
  Report Type: 
  Country: None (occurrence: None)
  Receive Date: 20041116
  Receipt Date: 20041012
  Transmission Date: 20050328
  Serious: No
  Sender: FDA-Public Use
  Company Number: S04-USA-06758-01

PATIENT

DRUGS (4)
  1. NAMENDA [Suspect]
     Dosage: 10 MG BID PO
     Route: 048
  2. NAMENDA [Suspect]
     Dosage: 5 MG QD PO
     Route: 048
  3. NAMENDA [Suspect]
     Dosage: 10 MG QD PO
     Route: 048
  4. NAMENDA [Suspect]
     Dosage: 15 MG QD PO
     Route: 048

REACTIONS (2)
  - POLLAKIURIA [None]
  - URINARY INCONTINENCE [None]
